FAERS Safety Report 7436860-X (Version None)
Quarter: 2011Q2

REPORT INFORMATION
  Report Type: 
  Country: None (occurrence: None)
  Receive Date: 20110426
  Receipt Date: 20110422
  Transmission Date: 20111010
  Serious: No
  Sender: FDA-Public Use
  Company Number: US-PFIZER INC-2011088087

PATIENT
  Sex: Male

DRUGS (2)
  1. VIAGRA [Suspect]
     Indication: ERECTILE DYSFUNCTION
     Dosage: 50 MG, AS NEEDED
     Route: 048
     Dates: start: 20110325
  2. PROSCAR [Concomitant]
     Indication: PROSTATIC DISORDER
     Dosage: UNK

REACTIONS (2)
  - DIZZINESS [None]
  - FEELING ABNORMAL [None]
